FAERS Safety Report 10364485 (Version 1)
Quarter: 2014Q3

REPORT INFORMATION
  Report Type: Spontaneous
  Country: US (occurrence: None)
  Receive Date: 20140804
  Receipt Date: 20140804
  Transmission Date: 20150326
  Serious: Yes (Life-Threatening, Hospitalization, Disabling, Other)
  Sender: FDA-Public Use
  Company Number: None

PATIENT
  Age: 57 Year
  Sex: Male
  Weight: 83.92 kg

DRUGS (2)
  1. RECLAST [Suspect]
     Active Substance: ZOLEDRONIC ACID
     Indication: OSTEOPOROSIS
     Dosage: 15ML?YEARLY ?INTO A VEIN
     Route: 042
     Dates: start: 20140609, end: 20140609
  2. RECLAST [Suspect]
     Active Substance: ZOLEDRONIC ACID
     Indication: SPINAL FRACTURE
     Dosage: 15ML?YEARLY ?INTO A VEIN
     Route: 042
     Dates: start: 20140609, end: 20140609

REACTIONS (17)
  - Asthma [None]
  - Erythema [None]
  - Palpitations [None]
  - Oropharyngeal pain [None]
  - Bone pain [None]
  - Visual impairment [None]
  - Systemic lupus erythematosus [None]
  - Hyperhidrosis [None]
  - Exostosis [None]
  - Abdominal pain [None]
  - Back pain [None]
  - Myalgia [None]
  - Hypersensitivity [None]
  - Chest pain [None]
  - Cough [None]
  - Dysuria [None]
  - Thirst [None]

NARRATIVE: CASE EVENT DATE: 20140609
